FAERS Safety Report 12214628 (Version 1)
Quarter: 2016Q1

REPORT INFORMATION
  Report Type: Spontaneous
  Country: IR (occurrence: IR)
  Receive Date: 20160328
  Receipt Date: 20160328
  Transmission Date: 20160526
  Serious: Yes (Hospitalization, Other)
  Sender: FDA-Public Use
  Company Number: IR-JNJFOC-20160323433

PATIENT
  Age: 3 Year
  Sex: Female

DRUGS (1)
  1. TRAMADOL HYDROCHLORIDE. [Suspect]
     Active Substance: TRAMADOL HYDROCHLORIDE
     Indication: PRODUCT USED FOR UNKNOWN INDICATION
     Route: 048

REACTIONS (5)
  - Respiratory alkalosis [Recovered/Resolved]
  - Ataxia [Recovered/Resolved]
  - Metabolic acidosis [Recovered/Resolved]
  - Somnolence [Recovered/Resolved]
  - Overdose [Unknown]
